FAERS Safety Report 18474870 (Version 1)
Quarter: 2020Q4

REPORT INFORMATION
  Report Type: Spontaneous
  Country: HU (occurrence: HU)
  Receive Date: 20201106
  Receipt Date: 20201106
  Transmission Date: 20210114
  Serious: Yes (Other)
  Sender: FDA-Public Use
  Company Number: HU-MYLANLABS-2020M1087714

PATIENT
  Sex: Female

DRUGS (5)
  1. BETAHISTINE [Concomitant]
     Active Substance: BETAHISTINE
     Dosage: 48 MILLIGRAM (3X48 MG)
     Route: 065
     Dates: start: 2015
  2. CITALOPRAM [Suspect]
     Active Substance: CITALOPRAM HYDROBROMIDE
     Indication: ANXIETY
     Dosage: 10 MILLIGRAM
     Route: 065
  3. BETAGEN [Suspect]
     Active Substance: BETAMETHASONE
     Indication: MENIERE^S DISEASE
     Dosage: 48 MILLIGRAM, 3 TIMES
  4. BETAHISTINE [Concomitant]
     Active Substance: BETAHISTINE
     Indication: MALAISE
     Dosage: 24 MILLIGRAM (2X24 MG)
     Route: 065
     Dates: end: 2015
  5. PIRACETAM [Concomitant]
     Active Substance: PIRACETAM
     Indication: PRODUCT USED FOR UNKNOWN INDICATION
     Dosage: UNK
     Route: 041

REACTIONS (4)
  - Meniere^s disease [Recovered/Resolved]
  - Hearing disability [Recovered/Resolved]
  - Hypoacusis [Recovered/Resolved]
  - Cholesteatoma [Unknown]

NARRATIVE: CASE EVENT DATE: 201901
